FAERS Safety Report 6436421-5 (Version None)
Quarter: 2009Q4

REPORT INFORMATION
  Report Type: 
  Country: None (occurrence: None)
  Receive Date: 20091110
  Receipt Date: 20091110
  Transmission Date: 20100525
  Serious: Yes (Hospitalization)
  Sender: FDA-Public Use
  Company Number: None

PATIENT
  Age: 23 Year
  Sex: Male
  Weight: 108.8633 kg

DRUGS (2)
  1. APLENZIN [Suspect]
     Indication: ANXIETY
     Dosage: 348MG 1 DAY PO
     Route: 048
     Dates: start: 20091027, end: 20091107
  2. APLENZIN [Suspect]
     Indication: DEPRESSION
     Dosage: 348MG 1 DAY PO
     Route: 048
     Dates: start: 20091027, end: 20091107

REACTIONS (3)
  - GRAND MAL CONVULSION [None]
  - TACHYCARDIA [None]
  - TRANSIENT ISCHAEMIC ATTACK [None]
